FAERS Safety Report 5783735-8 (Version None)
Quarter: 2008Q2

REPORT INFORMATION
  Report Type: 
  Country: None (occurrence: None)
  Receive Date: 20080605
  Receipt Date: 20080509
  Transmission Date: 20081010
  Serious: No
  Sender: FDA-Public Use
  Company Number: A0717062A

PATIENT

DRUGS (1)
  1. ALLI [Suspect]
     Dates: start: 20080306

REACTIONS (9)
  - DRUG INEFFECTIVE [None]
  - FATIGUE [None]
  - FOOD CRAVING [None]
  - HUNGER [None]
  - INFLUENZA [None]
  - LAZINESS [None]
  - NASOPHARYNGITIS [None]
  - WEIGHT FLUCTUATION [None]
  - WEIGHT INCREASED [None]
